FAERS Safety Report 20404489 (Version 2)
Quarter: 2022Q1

REPORT INFORMATION
  Report Type: Report from Study
  Country: US (occurrence: US)
  Receive Date: 20220131
  Receipt Date: 20220315
  Transmission Date: 20220423
  Serious: Yes (Hospitalization)
  Sender: FDA-Public Use
  Company Number: US-CELGENE-USA-20220106637

PATIENT
  Sex: Male
  Weight: 79.450 kg

DRUGS (3)
  1. POMALYST [Suspect]
     Active Substance: POMALIDOMIDE
     Indication: Plasma cell myeloma
     Dosage: 3 MILLIGRAM
     Route: 048
     Dates: start: 201806
  2. REVLIMID [Concomitant]
     Active Substance: LENALIDOMIDE
     Indication: Product used for unknown indication
     Route: 048
  3. NEUPOGEN [Concomitant]
     Active Substance: FILGRASTIM
     Indication: Product used for unknown indication
     Route: 065

REACTIONS (1)
  - COVID-19 [Unknown]

NARRATIVE: CASE EVENT DATE: 20220101
